FAERS Safety Report 8194895 (Version 2)
Quarter: 2014Q1

REPORT INFORMATION
  Report Type: Spontaneous
  Country: US (occurrence: US)
  Receive Date: 20111024
  Receipt Date: 20140326
  Transmission Date: 20141002
  Serious: Yes (Other)
  Sender: FDA-Public Use
  Company Number: US-RANBAXY-2011US-49552

PATIENT
  Age: 45 Year
  Sex: Male

DRUGS (2)
  1. ZIDOVUDINE [Suspect]
     Indication: ANTIRETROVIRAL THERAPY
     Dosage: UNK
     Route: 065
     Dates: start: 1987, end: 1995
  2. STAVUDINE [Suspect]
     Indication: ANTIRETROVIRAL THERAPY
     Dosage: UNK
     Route: 065
     Dates: start: 1996, end: 2009

REACTIONS (3)
  - Lipoatrophy [Unknown]
  - Enophthalmos [Recovering/Resolving]
  - Lagophthalmos [Recovered/Resolved]
